FAERS Safety Report 21712499 (Version 1)
Quarter: 2022Q4

REPORT INFORMATION
  Report Type: Report from Study
  Country: US (occurrence: US)
  Receive Date: 20221212
  Receipt Date: 20221212
  Transmission Date: 20230113
  Serious: Yes (Other)
  Sender: FDA-Public Use
  Company Number: US-AUROBINDO-AUR-APL-2022-052301

PATIENT
  Age: 2 Month
  Sex: Male

DRUGS (2)
  1. KETOROLAC TROMETHAMINE [Suspect]
     Active Substance: KETOROLAC TROMETHAMINE
     Indication: Procedural pain
     Dosage: 0.5 MILLIGRAM/KILOGRAM, ONCE A DAY FOR EVERY 6 HOURS
     Route: 042
  2. KETOROLAC TROMETHAMINE [Suspect]
     Active Substance: KETOROLAC TROMETHAMINE
     Dosage: TOTAL 6 DOSES
     Route: 042

REACTIONS (2)
  - Haemorrhage [Unknown]
  - Haemoglobin decreased [Unknown]
